FAERS Safety Report 10878371 (Version 1)
Quarter: 2015Q1

REPORT INFORMATION
  Report Type: Report from Study
  Country: TN (occurrence: TN)
  Receive Date: 20150302
  Receipt Date: 20150302
  Transmission Date: 20150721
  Serious: Yes (Death, Hospitalization)
  Sender: FDA-Public Use
  Company Number: TN-SA-2015SA023321

PATIENT
  Age: 60 Year
  Sex: Male

DRUGS (7)
  1. ASPEGIC [Concomitant]
     Active Substance: ASPIRIN DL-LYSINE
     Route: 048
     Dates: end: 20140902
  2. PLAVIX [Suspect]
     Active Substance: CLOPIDOGREL BISULFATE
     Indication: MYOCARDIAL INFARCTION
     Route: 048
     Dates: start: 20140402, end: 20140902
  3. CRESTOR [Concomitant]
     Active Substance: ROSUVASTATIN CALCIUM
  4. COVERSYL [Concomitant]
     Active Substance: PERINDOPRIL
     Route: 048
     Dates: end: 20140902
  5. MOPRAL [Concomitant]
     Active Substance: OMEPRAZOLE SODIUM
  6. LASILIX [Concomitant]
     Active Substance: FUROSEMIDE
     Route: 048
     Dates: end: 20140902
  7. AMAREL [Concomitant]
     Active Substance: GLIMEPIRIDE
     Route: 048
     Dates: end: 20140902

REACTIONS (2)
  - Cardiogenic shock [Fatal]
  - Myocardial infarction [Unknown]

NARRATIVE: CASE EVENT DATE: 20140822
